FAERS Safety Report 7370530-1 (Version None)
Quarter: 2011Q1

REPORT INFORMATION
  Report Type: 
  Country: None (occurrence: None)
  Receive Date: 20110323
  Receipt Date: 20070221
  Transmission Date: 20110831
  Serious: Yes (Other)
  Sender: FDA-Public Use
  Company Number: NL-ELI_LILLY_AND_COMPANY-NL200702004299

PATIENT
  Sex: Female
  Weight: 54 kg

DRUGS (2)
  1. ZYPREXA [Suspect]
     Indication: BIPOLAR I DISORDER
     Dosage: 15 MG, UNK
     Dates: start: 20060814, end: 20060815
  2. DEPAKENE [Concomitant]
     Indication: BIPOLAR DISORDER
     Dosage: 1200 MG, UNK
     Dates: start: 20040331

REACTIONS (2)
  - URINARY TRACT INFECTION [None]
  - EPILEPSY [None]
